FAERS Safety Report 9197612 (Version 2)
Quarter: 2013Q2

REPORT INFORMATION
  Report Type: Spontaneous
  Country: US (occurrence: US)
  Receive Date: 20130328
  Receipt Date: 20130607
  Transmission Date: 20140414
  Serious: Yes (Other)
  Sender: FDA-Public Use
  Company Number: US-BAYER-2013-035774

PATIENT
  Age: 24 Year
  Sex: Female

DRUGS (2)
  1. MIRENA [Suspect]
     Indication: CONTRACEPTION
     Dosage: 20 MCG/24HR, CONT
     Route: 015
     Dates: start: 20091022, end: 20121205
  2. CIPRO [Concomitant]
     Dosage: UNK

REACTIONS (7)
  - Urinary tract infection [None]
  - Abdominal pain [None]
  - Gastrointestinal motility disorder [None]
  - Ovarian cyst [None]
  - Injury [None]
  - Pain [None]
  - Emotional distress [None]
